FAERS Safety Report 4949303-2 (Version None)
Quarter: 2006Q1

REPORT INFORMATION
  Report Type: 
  Country: None (occurrence: None)
  Receive Date: 20060315
  Receipt Date: 20060307
  Transmission Date: 20060701
  Serious: Yes (Hospitalization)
  Sender: FDA-Public Use
  Company Number: 2005BI012273

PATIENT
  Age: 58 Year
  Sex: Female
  Weight: 64.8644 kg

DRUGS (6)
  1. AVONEX [Suspect]
     Indication: MULTIPLE SCLEROSIS
     Dosage: 30 UG;QM;IM
     Route: 030
     Dates: start: 20020901, end: 20040101
  2. AVONEX [Suspect]
     Indication: MULTIPLE SCLEROSIS
     Dosage: 30 UG;QW;IM
     Route: 030
     Dates: start: 20040101
  3. FOSAMAX [Concomitant]
  4. SYNTHROID [Concomitant]
  5. PREMARIN [Concomitant]
  6. VITAMINS NOS [Concomitant]

REACTIONS (5)
  - FALL [None]
  - FEMUR FRACTURE [None]
  - HIP FRACTURE [None]
  - INJURY [None]
  - POST PROCEDURAL HAEMORRHAGE [None]
